FAERS Safety Report 4443995-2 (Version None)
Quarter: 2004Q3

REPORT INFORMATION
  Report Type: 
  Country: None (occurrence: None)
  Receive Date: 20040729
  Receipt Date: 20031024
  Transmission Date: 20050211
  Serious: Yes (Other)
  Sender: FDA-Public Use
  Company Number: US-JNJFOC-20031005694

PATIENT
  Age: 12 Year
  Sex: Male

DRUGS (3)
  1. RISPERDAL [Suspect]
     Dosage: 2 MG,   IN 1 DAY, ORAL;  1.5 MG,   IN 1 DAY, ORAL;  2 MG,  IN 1 DAY, ORAL
     Route: 048
  2. LITHIUM CARBONATE [Concomitant]
  3. KLONOPIN [Concomitant]

REACTIONS (6)
  - AGITATION [None]
  - HALLUCINATION, AUDITORY [None]
  - MUSCLE SPASMS [None]
  - SEDATION [None]
  - TARDIVE DYSKINESIA [None]
  - TIC [None]
